FAERS Safety Report 4543310-X (Version None)
Quarter: 2004Q4

REPORT INFORMATION
  Report Type: 
  Country: None (occurrence: None)
  Receive Date: 20041230
  Receipt Date: 20041230
  Transmission Date: 20050328
  Serious: Yes (Other)
  Sender: FDA-Public Use
  Company Number: None

PATIENT
  Age: 27 Year
  Sex: Male
  Weight: 70.7611 kg

DRUGS (1)
  1. ARIPIRAZOLE   15 MG [Suspect]
     Dosage: 15 MG     Q AM    ORAL
     Route: 048

REACTIONS (2)
  - BLOOD CHOLESTEROL INCREASED [None]
  - WEIGHT INCREASED [None]
